FAERS Safety Report 19862691 (Version 1)
Quarter: 2021Q3

REPORT INFORMATION
  Report Type: Other
  Country: GB (occurrence: GB)
  Receive Date: 20210921
  Receipt Date: 20210921
  Transmission Date: 20211014
  Serious: Yes (Other)
  Sender: FDA-Public Use
  Company Number: GB-COLLEGIUM PHARMACEUTICAL, INC.-2021CGM01039

PATIENT
  Age: 46 Year
  Sex: Female
  Weight: 69.85 kg

DRUGS (6)
  1. TAPENTADOL [Suspect]
     Active Substance: TAPENTADOL
     Indication: PAIN
     Dosage: 50 MG, 2X/DAY
     Route: 048
     Dates: start: 20210820
  2. BACLOFEN. [Concomitant]
     Active Substance: BACLOFEN
  3. DULOXETINE. [Concomitant]
     Active Substance: DULOXETINE
  4. ALL OTHER THERAPEUTIC PRODUCTS [Concomitant]
     Active Substance: UNSPECIFIED INGREDIENT
  5. ARCOXIA [Concomitant]
     Active Substance: ETORICOXIB
  6. TIZANIDINE. [Concomitant]
     Active Substance: TIZANIDINE

REACTIONS (5)
  - Depressed mood [Unknown]
  - Feeling of despair [Unknown]
  - Feeling abnormal [Unknown]
  - Anger [Unknown]
  - Nightmare [Unknown]

NARRATIVE: CASE EVENT DATE: 20210820
